FAERS Safety Report 8822367 (Version 2)
Quarter: 2012Q4

REPORT INFORMATION
  Report Type: Report from Study
  Country: CA (occurrence: CA)
  Receive Date: 20121003
  Receipt Date: 20121107
  Transmission Date: 20130627
  Serious: Yes (Other)
  Sender: FDA-Public Use
  Company Number: PHHY2012CA085834

PATIENT
  Sex: Female

DRUGS (2)
  1. CLOZARIL [Suspect]
     Indication: SCHIZOAFFECTIVE DISORDER
     Route: 048
     Dates: start: 19961127
  2. CLOZARIL [Suspect]
     Dosage: 50mg AM, 250mg hs
     Route: 048

REACTIONS (10)
  - Cerebrovascular accident [Unknown]
  - Sensory loss [Unknown]
  - Motor dysfunction [Unknown]
  - Dizziness [Unknown]
  - Balance disorder [Unknown]
  - Gait disturbance [Unknown]
  - Confusional state [Unknown]
  - Tooth abscess [Unknown]
  - Urinary incontinence [Unknown]
  - Carotid artery stenosis [Unknown]
